FAERS Safety Report 8030951-0 (Version None)
Quarter: 2012Q1

REPORT INFORMATION
  Report Type: 
  Country: None (occurrence: None)
  Receive Date: 20120109
  Receipt Date: 20120106
  Transmission Date: 20120608
  Serious: Yes (Hospitalization)
  Sender: FDA-Public Use
  Company Number: DE-ROCHE-1026730

PATIENT
  Sex: Male
  Weight: 82 kg

DRUGS (6)
  1. COPEGUS [Suspect]
     Indication: HEPATITIS C
     Route: 048
     Dates: start: 20110517
  2. PEGINTERFERON ALFA-2A [Suspect]
     Indication: HEPATITIS C
     Route: 058
     Dates: start: 20110614
  3. DIAZEPAM [Concomitant]
     Indication: PANIC DISORDER
     Route: 048
  4. DOXEPIN [Concomitant]
     Indication: PANIC DISORDER
     Route: 048
  5. IBUPROFEN [Concomitant]
     Indication: HEADACHE
     Route: 048
     Dates: start: 20110531
  6. METOCLOPRAMIDE [Concomitant]
     Indication: NAUSEA
     Dosage: FORM:DROPS,AS REQUIRED
     Route: 048
     Dates: start: 20110815

REACTIONS (2)
  - CHOLELITHIASIS [None]
  - CHOLECYSTITIS [None]
